FAERS Safety Report 6132638-8 (Version None)
Quarter: 2009Q1

REPORT INFORMATION
  Report Type: 
  Country: None (occurrence: None)
  Receive Date: 20090324
  Receipt Date: 20090309
  Transmission Date: 20090719
  Serious: Yes (Hospitalization)
  Sender: FDA-Public Use
  Company Number: 2009000728

PATIENT
  Age: 60 Year
  Sex: Female
  Weight: 56.8 kg

DRUGS (3)
  1. ERLOTINIB (ERLOTINIB) (TABLET) (ERLOTINIB) [Suspect]
     Indication: PANCREATIC CARCINOMA
     Dosage: (100 MG,QD),ORAL
     Route: 048
     Dates: start: 20081120, end: 20081218
  2. GEMCITABINE [Suspect]
     Indication: PANCREATIC CARCINOMA
     Dosage: (1000 MG/M2,QW),INTRAVENOUS
     Route: 042
     Dates: start: 20081120, end: 20081218
  3. XELODA [Suspect]
     Indication: PANCREATIC CARCINOMA
     Dosage: (1250 MG/M2,BID)
     Dates: start: 20081120, end: 20081218

REACTIONS (7)
  - CULTURE URINE POSITIVE [None]
  - DEHYDRATION [None]
  - ESCHERICHIA INFECTION [None]
  - MUCOSAL INFLAMMATION [None]
  - PLATELET COUNT DECREASED [None]
  - PNEUMONIA KLEBSIELLA [None]
  - VOMITING [None]
